FAERS Safety Report 22250587 (Version 1)
Quarter: 2023Q2

REPORT INFORMATION
  Report Type: Spontaneous
  Country: CN (occurrence: CN)
  Receive Date: 20230425
  Receipt Date: 20230425
  Transmission Date: 20230722
  Serious: Yes (Hospitalization, Other)
  Sender: FDA-Public Use
  Company Number: CN-SA-2023SA121867

PATIENT
  Age: 20 Year
  Sex: Male

DRUGS (5)
  1. ENOXAPARIN SODIUM [Suspect]
     Active Substance: ENOXAPARIN SODIUM
     Indication: Anticoagulant therapy
     Dosage: 6000 U, Q12H
  2. NOREPINEPHRINE [Concomitant]
     Active Substance: NOREPINEPHRINE
     Indication: Hypotension
     Dosage: UNK (MAXIMUM DOSE REACHED 0.72UG/KG/MIN
  3. MEROPENEM [Concomitant]
     Active Substance: MEROPENEM
     Indication: Anti-infective therapy
     Dosage: 1.0 G, Q8H
  4. DAPTOMYCIN [Concomitant]
     Active Substance: DAPTOMYCIN
     Indication: Anti-infective therapy
     Dosage: 0.5 G, QD
  5. LINEZOLID [Concomitant]
     Active Substance: LINEZOLID
     Indication: Anti-infective therapy
     Dosage: 0.6 G, Q12H

REACTIONS (6)
  - Cerebral venous sinus thrombosis [Recovered/Resolved]
  - Subarachnoid haemorrhage [Recovered/Resolved]
  - Brain oedema [Recovered/Resolved]
  - Condition aggravated [Recovered/Resolved]
  - Intracranial pressure increased [Recovered/Resolved]
  - Gastrointestinal haemorrhage [Unknown]
